FAERS Safety Report 17191358 (Version 1)
Quarter: 2019Q4

REPORT INFORMATION
  Report Type: Spontaneous
  Country: US (occurrence: US)
  Receive Date: 20191223
  Receipt Date: 20191223
  Transmission Date: 20200122
  Serious: No
  Sender: FDA-Public Use
  Company Number: US-TEVA-2019-US-1157744

PATIENT
  Sex: Female

DRUGS (3)
  1. AUSTEDO [Suspect]
     Active Substance: DEUTETRABENAZINE
     Dosage: 15 MILLIGRAM DAILY; 15 MILLIGRAMS = 1 X 6 MG TABLET +  1 X 9 MG TABLET
     Route: 065
  2. AUSTEDO [Suspect]
     Active Substance: DEUTETRABENAZINE
     Dosage: 15 MILLIGRAM DAILY; 15 MILLIGRAMS = 1 X 6 MG TABLET +  1 X 9 MG TABLET
     Route: 065
  3. AUSTEDO [Suspect]
     Active Substance: DEUTETRABENAZINE
     Indication: TARDIVE DYSKINESIA
     Dosage: 12 MILLIGRAM DAILY; INITIALLY
     Route: 065

REACTIONS (1)
  - Drug ineffective [Unknown]
